FAERS Safety Report 11219786 (Version 1)
Quarter: 2015Q2

REPORT INFORMATION
  Report Type: Spontaneous
  Country: US (occurrence: US)
  Receive Date: 20150625
  Receipt Date: 20150625
  Transmission Date: 20150821
  Serious: No
  Sender: FDA-Public Use
  Company Number: US-MYLANLABS-2015M1013331

PATIENT
  Age: 67 Year
  Sex: Female

DRUGS (2)
  1. ATORVASTATIN CALCIUM TABLETS [Suspect]
     Active Substance: ATORVASTATIN CALCIUM
     Dosage: 80 MG, QD
     Route: 048
  2. ATORVASTATIN CALCIUM TABLETS [Suspect]
     Active Substance: ATORVASTATIN CALCIUM
     Dosage: 80 MG, QD
     Route: 048

REACTIONS (1)
  - Dysgeusia [Not Recovered/Not Resolved]

NARRATIVE: CASE EVENT DATE: 201501
